FAERS Safety Report 14969080 (Version 1)
Quarter: 2018Q2

REPORT INFORMATION
  Report Type: Spontaneous
  Country: US (occurrence: US)
  Receive Date: 20180511
  Receipt Date: 20180511
  Transmission Date: 20180711
  Serious: Yes (Other)
  Sender: FDA-Public Use
  Company Number: None

PATIENT
  Age: 68 Year
  Sex: Female
  Weight: 78.75 kg

DRUGS (10)
  1. FISH OIL [Concomitant]
     Active Substance: FISH OIL
  2. GARLIC EXTRACT [Concomitant]
     Active Substance: GARLIC
  3. MULTI VITAMIN [Concomitant]
     Active Substance: VITAMINS
  4. POTASSIUM GLUCONATE [Concomitant]
     Active Substance: POTASSIUM GLUCONATE
  5. ASPIRIN. [Concomitant]
     Active Substance: ASPIRIN
  6. CHROMIUM PICOLINATE [Concomitant]
     Active Substance: CHROMIUM PICOLINATE
  7. MAGNESIUM [Concomitant]
     Active Substance: MAGNESIUM
  8. RISEDRONATE SODIUM TABLET, USP 150MG [Suspect]
     Active Substance: RISEDRONATE SODIUM
     Indication: OSTEOPOROSIS
     Dosage: ?          QUANTITY:1 TABLET(S);?
     Route: 048
     Dates: start: 20180409, end: 20180409
  9. CALCIUM + D [Concomitant]
     Active Substance: CALCIUM\VITAMIN D
  10. VITAMIN C [Concomitant]
     Active Substance: ASCORBIC ACID

REACTIONS (3)
  - Mental impairment [None]
  - Muscle spasms [None]
  - Impaired work ability [None]

NARRATIVE: CASE EVENT DATE: 20180409
